FAERS Safety Report 6415035-7 (Version None)
Quarter: 2009Q4

REPORT INFORMATION
  Report Type: 
  Country: None (occurrence: None)
  Receive Date: 20091026
  Receipt Date: 20090928
  Transmission Date: 20100525
  Serious: No
  Sender: FDA-Public Use
  Company Number: US-ABBOTT-09P-163-0600165-00

PATIENT
  Sex: Female
  Weight: 59.02 kg

DRUGS (4)
  1. LUPRON DEPOT [Suspect]
     Indication: MIGRAINE
     Route: 050
     Dates: start: 20071201
  2. NORETHINDRONE [Concomitant]
     Indication: HORMONE THERAPY
  3. MULTI-VITAMIN [Concomitant]
     Indication: DRUG USE FOR UNKNOWN INDICATION
     Route: 048
  4. CALCIUM [Concomitant]
     Indication: RESORPTION BONE INCREASED

REACTIONS (1)
  - DRUG EFFECT DECREASED [None]
